FAERS Safety Report 8974485 (Version 1)
Quarter: 2012Q4

REPORT INFORMATION
  Report Type: 
  Country: CR (occurrence: CR)
  Receive Date: 20121220
  Receipt Date: 20121220
  Transmission Date: 20130627
  Serious: Yes (Death, Other)
  Sender: FDA-Public Use
  Company Number: CR-PFIZER INC-2012323055

PATIENT
  Age: 77 Year
  Sex: Male

DRUGS (1)
  1. LIPITOR [Suspect]
     Dosage: 20 mg, 1x/day
     Route: 048

REACTIONS (2)
  - Myocardial infarction [Fatal]
  - Cardiac aneurysm [Unknown]
